FAERS Safety Report 12412245 (Version 1)
Quarter: 2016Q2

REPORT INFORMATION
  Report Type: Spontaneous
  Country: US (occurrence: US)
  Receive Date: 20160527
  Receipt Date: 20160527
  Transmission Date: 20160815
  Serious: Yes (Other)
  Sender: FDA-Public Use
  Company Number: US-FRESENIUS KABI-FK201603035

PATIENT
  Age: 3 Year
  Sex: Female

DRUGS (2)
  1. CLADRIBINE (MANUFACTURER UNKNOWN) [Suspect]
     Active Substance: CLADRIBINE
     Indication: SALVAGE THERAPY
     Route: 065
  2. CYTARABINE (MANUFACTURER UNKNOWN) [Suspect]
     Active Substance: CYTARABINE
     Indication: SALVAGE THERAPY
     Route: 065

REACTIONS (5)
  - Seizure [Unknown]
  - Colitis [Unknown]
  - Respiratory distress [Unknown]
  - Hemiparesis [Unknown]
  - Systemic candida [Unknown]
